FAERS Safety Report 22865967 (Version 2)
Quarter: 2024Q1

REPORT INFORMATION
  Report Type: Spontaneous
  Country: US (occurrence: None)
  Receive Date: 20230825
  Receipt Date: 20240320
  Transmission Date: 20240409
  Serious: Yes (Hospitalization, Other)
  Sender: FDA-Public Use
  Company Number: US-FARMAPROD-202308-2457

PATIENT
  Sex: Female
  Weight: 82.81 kg

DRUGS (30)
  1. OXERVATE [Suspect]
     Active Substance: CENEGERMIN-BKBJ
     Indication: Neurotrophic keratopathy
     Route: 047
     Dates: start: 20230710, end: 20230904
  2. OXERVATE [Suspect]
     Active Substance: CENEGERMIN-BKBJ
     Route: 047
     Dates: start: 20240123
  3. MELATONIN [Concomitant]
     Active Substance: MELATONIN
  4. LIDOCAINE [Concomitant]
     Active Substance: LIDOCAINE
     Dosage: ADHESIVE PATCH.
  5. ORTIKOS [Concomitant]
     Active Substance: BUDESONIDE
  6. ALBUTEROL SULFATE [Concomitant]
     Active Substance: ALBUTEROL SULFATE
     Dosage: 0.63 MG / 3 ML VIAL NEBULIZER.
  7. ONDANSETRON [Concomitant]
     Active Substance: ONDANSETRON
     Dosage: ORALLY DISPERSIBLE TABLETS.
  8. FAMOTIDINE [Concomitant]
     Active Substance: FAMOTIDINE
  9. HYDROXYZINE HYDROCHLORIDE [Concomitant]
     Active Substance: HYDROXYZINE HYDROCHLORIDE
  10. TORSEMIDE [Concomitant]
     Active Substance: TORSEMIDE
  11. DILTIAZEM [Concomitant]
     Active Substance: DILTIAZEM
     Dosage: EXTENDED RELEASE 24 HOURS.
  12. CARVEDILOL [Concomitant]
     Active Substance: CARVEDILOL
  13. PREMARIN [Concomitant]
     Active Substance: ESTROGENS, CONJUGATED
     Dosage: WITH APPLICATOR.
  14. ELIQUIS [Concomitant]
     Active Substance: APIXABAN
  15. POTASSIUM CHLORIDE [Concomitant]
     Active Substance: POTASSIUM CHLORIDE
  16. INSULIN LISPRO KWIKPEN U-100 [Concomitant]
  17. HYDRALAZINE HCL [Concomitant]
     Active Substance: HYDRALAZINE HYDROCHLORIDE
  18. VITAMIN D2 [Concomitant]
     Active Substance: ERGOCALCIFEROL
  19. ACETAMINOPHEN [Concomitant]
     Active Substance: ACETAMINOPHEN
  20. SPIRIVA RESPIMAT [Concomitant]
     Active Substance: TIOTROPIUM BROMIDE
     Dosage: MIST INHALATION.
  21. LANTUS SOLOSTAR [Concomitant]
     Active Substance: INSULIN GLARGINE
     Dosage: INSULIN PEN.
  22. TRINTELLIX [Concomitant]
     Active Substance: VORTIOXETINE HYDROBROMIDE
  23. LEVOTHYROXINE SODIUM [Concomitant]
     Active Substance: LEVOTHYROXINE SODIUM
  24. FLUTICASONE PROPIONATE [Concomitant]
     Active Substance: FLUTICASONE PROPIONATE
     Dosage: SPRAY SUSPENSION.
  25. AZELASTINE HYDROCHLORIDE [Concomitant]
     Active Substance: AZELASTINE HYDROCHLORIDE
  26. ALLOPURINOL [Concomitant]
     Active Substance: ALLOPURINOL
  27. PREGABALIN [Concomitant]
     Active Substance: PREGABALIN
  28. FEXOFENADINE HYDROCHLORIDE [Concomitant]
     Active Substance: FEXOFENADINE HYDROCHLORIDE
  29. ATORVASTATIN CALCIUM [Concomitant]
     Active Substance: ATORVASTATIN CALCIUM
  30. MONTELUKAST SODIUM [Concomitant]
     Active Substance: MONTELUKAST SODIUM

REACTIONS (3)
  - Dialysis [Unknown]
  - Hospitalisation [Unknown]
  - Product dose omission issue [Unknown]
